FAERS Safety Report 19451354 (Version 1)
Quarter: 2021Q2

REPORT INFORMATION
  Report Type: Spontaneous
  Country: US (occurrence: US)
  Receive Date: 20210623
  Receipt Date: 20210623
  Transmission Date: 20210717
  Serious: No
  Sender: FDA-Public Use
  Company Number: US-TERSERA THERAPEUTICS LLC-2020TRS002228

PATIENT

DRUGS (3)
  1. ZOLADEX [Suspect]
     Active Substance: GOSERELIN ACETATE
     Dosage: 3.6 MG,ONCE EVERY 28 DAYS
     Route: 065
     Dates: start: 20200731
  2. ZOLADEX [Suspect]
     Active Substance: GOSERELIN ACETATE
     Indication: BREAST CANCER
     Dosage: 3.6 MG,ONCE EVERY 28 DAYS
     Route: 065
     Dates: start: 20190227
  3. ZOLADEX [Suspect]
     Active Substance: GOSERELIN ACETATE
     Dosage: 3.6 MG,ONCE EVERY 28 DAYS
     Route: 065
     Dates: start: 20200803

REACTIONS (3)
  - Expulsion of medication [Recovered/Resolved]
  - Product administration error [Recovered/Resolved]
  - Circumstance or information capable of leading to device use error [Recovered/Resolved]

NARRATIVE: CASE EVENT DATE: 20200731
